FAERS Safety Report 12241414 (Version 2)
Quarter: 2016Q2

REPORT INFORMATION
  Report Type: Spontaneous
  Country: US (occurrence: US)
  Receive Date: 20160406
  Receipt Date: 20160614
  Transmission Date: 20160815
  Serious: No
  Sender: FDA-Public Use
  Company Number: US-PFIZER INC-2016171780

PATIENT
  Age: 67 Year
  Sex: Female
  Weight: 73.16 kg

DRUGS (3)
  1. FASLODEX [Concomitant]
     Active Substance: FULVESTRANT
     Indication: BONE DISORDER
     Dosage: 500 MG, EVERY TWO WEEKS
  2. IBRANCE [Suspect]
     Active Substance: PALBOCICLIB
     Indication: BONE CANCER
     Dosage: 125 MG, ONCE A DAY, FOR 21 DAYS AND THEN STOPPED FOR 7 DAYS
     Route: 048
     Dates: start: 201602
  3. XGEVA [Concomitant]
     Active Substance: DENOSUMAB
     Indication: BONE DISORDER
     Dosage: 125 MG, ONCE A MONTH

REACTIONS (10)
  - Somnolence [Unknown]
  - Back pain [Not Recovered/Not Resolved]
  - Product use issue [Unknown]
  - Dizziness [Unknown]
  - Fatigue [Recovered/Resolved]
  - Headache [Unknown]
  - White blood cell count decreased [Unknown]
  - Neck pain [Not Recovered/Not Resolved]
  - Feeling abnormal [Unknown]
  - Weight increased [Not Recovered/Not Resolved]

NARRATIVE: CASE EVENT DATE: 2016
